FAERS Safety Report 4472585-0 (Version None)
Quarter: 2004Q4

REPORT INFORMATION
  Report Type: 
  Country: None (occurrence: None)
  Receive Date: 20041008
  Receipt Date: 20040922
  Transmission Date: 20050328
  Serious: Yes (Hospitalization)
  Sender: FDA-Public Use
  Company Number: A01200404645

PATIENT
  Age: 62 Year
  Sex: Male

DRUGS (12)
  1. XATRAL - (ALFUZOSIN) - TABLET - 5 MG [Suspect]
     Indication: BENIGN PROSTATIC HYPERPLASIA
     Dosage: 5 MG OD ORAL
     Route: 048
     Dates: start: 20040601, end: 20040617
  2. PULMICORT [Concomitant]
  3. LANSOPRAZOLE [Concomitant]
  4. AERIUS (DESLORATADINE) [Concomitant]
  5. EMCONCOR (BISOPROLOL) [Concomitant]
  6. CITALOPRAM [Concomitant]
  7. ATARAX [Concomitant]
  8. WARFARIN SODIUM [Concomitant]
  9. ORALVITE (VITAMIN B1+VITAMIN B2+ VITAMIN B6+VITAMIN C+ NICOTINE AMIDE) [Concomitant]
  10. ATROVENT [Concomitant]
  11. ACETYLCYSTEIN (ACETYLCYSTEINE) [Concomitant]
  12. TRIOBE (FOLIC ACID+VITAMIN B6+VITAMIN B12) [Concomitant]

REACTIONS (7)
  - CARDIAC FAILURE [None]
  - CARDIOMEGALY [None]
  - DYSPNOEA [None]
  - HEART VALVE INSUFFICIENCY [None]
  - OEDEMA PERIPHERAL [None]
  - PULMONARY HYPERTENSION [None]
  - WEIGHT DECREASED [None]
